FAERS Safety Report 20348666 (Version 1)
Quarter: 2022Q1

REPORT INFORMATION
  Report Type: Spontaneous
  Country: US (occurrence: None)
  Receive Date: 20220119
  Receipt Date: 20220119
  Transmission Date: 20220423
  Serious: No
  Sender: FDA-Public Use
  Company Number: US-MDD US Operations-MDD202111-002381

PATIENT
  Age: 63 Year
  Sex: Female

DRUGS (1)
  1. MYOBLOC [Suspect]
     Active Substance: RIMABOTULINUMTOXINB
     Indication: Torticollis
     Dosage: NOT PROVIDED
     Dates: start: 20210416

REACTIONS (5)
  - Lip blister [Unknown]
  - Eye ulcer [Unknown]
  - Eye pain [Unknown]
  - Dry eye [Unknown]
  - Dry mouth [Unknown]

NARRATIVE: CASE EVENT DATE: 20210101
